FAERS Safety Report 23888171 (Version 1)
Quarter: 2024Q2

REPORT INFORMATION
  Report Type: Spontaneous
  Country: CA (occurrence: CA)
  Receive Date: 20240523
  Receipt Date: 20240523
  Transmission Date: 20240716
  Serious: Yes (Hospitalization, Other)
  Sender: FDA-Public Use
  Company Number: CA-ORGANON-O2405CAN001746

PATIENT
  Age: 57 Year
  Sex: Male

DRUGS (5)
  1. SINGULAIR [Suspect]
     Active Substance: MONTELUKAST SODIUM
     Indication: Chronic spontaneous urticaria
     Dosage: 10 MILLIGRAM, 1 EVERY 1 DAYS
     Route: 048
  2. CYCLOSPORINE [Suspect]
     Active Substance: CYCLOSPORINE
     Indication: Chronic spontaneous urticaria
     Dosage: 50 MILLIGRAM, 2 EVERY 1 DAYS
     Route: 048
  3. PREDNISONE [Concomitant]
     Active Substance: PREDNISONE
     Indication: Chronic spontaneous urticaria
     Dosage: UNK, 1 EVERY 1 DAYS
     Route: 048
  4. CETIRIZINE HYDROCHLORIDE\PSEUDOEPHEDRINE HYDROCHLORIDE [Concomitant]
     Active Substance: CETIRIZINE HYDROCHLORIDE\PSEUDOEPHEDRINE HYDROCHLORIDE
     Indication: Chronic spontaneous urticaria
     Dosage: UNK, 2 EVERY 1 DAYS
     Route: 048
  5. DIPHENHYDRAMINE [Concomitant]
     Active Substance: DIPHENHYDRAMINE
     Indication: Chronic spontaneous urticaria
     Dosage: UNK
     Route: 048

REACTIONS (6)
  - Urticaria [Unknown]
  - Insomnia [Unknown]
  - Oedema [Unknown]
  - Oral mucosal erythema [Unknown]
  - Pain [Unknown]
  - Pruritus [Unknown]
